FAERS Safety Report 11465701 (Version 5)
Quarter: 2016Q4

REPORT INFORMATION
  Report Type: Report from Study
  Country: BR (occurrence: BR)
  Receive Date: 20150907
  Receipt Date: 20161103
  Transmission Date: 20170206
  Serious: Yes (Other)
  Sender: FDA-Public Use
  Company Number: PHHY2015BR105761

PATIENT
  Sex: Female
  Weight: 76 kg

DRUGS (9)
  1. DIOVAN AMLO FIX [Suspect]
     Active Substance: AMLODIPINE\VALSARTAN
     Indication: HYPERTENSION
     Dosage: 1 DF, QD (STARTED AS AMLODIPINE10MG, VALSARTAN 320 MG AND MAINTAINED AT 320/5 MG)
     Route: 065
  2. DIOVAN [Suspect]
     Active Substance: VALSARTAN
     Indication: HYPERTENSION
     Dosage: 2 DF, QD (CONCENTRATION 160/12)
     Route: 065
  3. EUTIROX [Concomitant]
     Active Substance: LEVOTHYROXINE SODIUM
     Indication: HYPOTHYROIDISM
     Dosage: 1 DF, QD (FOR OVER 20 YEARS)
     Route: 048
  4. ANASTROZOLE. [Suspect]
     Active Substance: ANASTROZOLE
     Indication: PRODUCT USED FOR UNKNOWN INDICATION
     Dosage: UNK
     Route: 065
  5. VITAMIN D [Suspect]
     Active Substance: CHOLECALCIFEROL
     Indication: PRODUCT USED FOR UNKNOWN INDICATION
     Dosage: UNK
     Route: 065
  6. ANASTROZOLE. [Concomitant]
     Active Substance: ANASTROZOLE
     Indication: PROPHYLAXIS
     Dosage: 1 DF, QD
     Route: 048
     Dates: start: 2014
  7. VITAMIN B12 [Concomitant]
     Active Substance: CYANOCOBALAMIN
     Indication: PRODUCT USED FOR UNKNOWN INDICATION
     Route: 065
  8. DIOVAN AMLO FIX [Suspect]
     Active Substance: AMLODIPINE\VALSARTAN
     Dosage: 2 DF (AMLODIPINE 5 MG/VALSARTAN 320 MG), QD (10 YEARS AGO)
     Route: 048
  9. TAMOXIFEN [Suspect]
     Active Substance: TAMOXIFEN
     Indication: NEOPLASM PROPHYLAXIS
     Dosage: 2 DF, QD
     Route: 065
     Dates: start: 2012

REACTIONS (18)
  - Intestinal polyp [Unknown]
  - Feeling abnormal [Unknown]
  - Blood pressure inadequately controlled [Unknown]
  - Arthritis [Not Recovered/Not Resolved]
  - Breast cancer [Not Recovered/Not Resolved]
  - Haemorrhage [Unknown]
  - Swelling [Unknown]
  - Dyspnoea [Unknown]
  - Emotional disorder [Unknown]
  - Diabetes mellitus [Not Recovered/Not Resolved]
  - Body height below normal [Unknown]
  - Osteoarthritis [Not Recovered/Not Resolved]
  - Incorrect dose administered [Unknown]
  - Pain [Unknown]
  - Cough [Unknown]
  - Endometriosis [Not Recovered/Not Resolved]
  - Malaise [Unknown]
  - Blood pressure increased [Not Recovered/Not Resolved]

NARRATIVE: CASE EVENT DATE: 2012
